FAERS Safety Report 8408571-5 (Version None)
Quarter: 2012Q2

REPORT INFORMATION
  Report Type: 
  Country: None (occurrence: None)
  Receive Date: 20120604
  Receipt Date: 20120527
  Transmission Date: 20120825
  Serious: No
  Sender: FDA-Public Use
  Company Number: US-BAYER-2012-054431

PATIENT
  Age: 65 Year
  Sex: Female
  Weight: 56 kg

DRUGS (4)
  1. VITAMIN D [Concomitant]
  2. ALEVE (CAPLET) [Suspect]
     Indication: ANALGESIC THERAPY
     Dosage: 2 U, QOD
     Route: 048
     Dates: start: 20120501
  3. IBUPROFEN [Concomitant]
  4. FISH OIL [Concomitant]

REACTIONS (1)
  - DRUG INEFFECTIVE [None]
